FAERS Safety Report 15204006 (Version 1)
Quarter: 2018Q3

REPORT INFORMATION
  Report Type: Spontaneous
  Country: CA (occurrence: CA)
  Receive Date: 20180726
  Receipt Date: 20180726
  Transmission Date: 20181010
  Serious: Yes (Other)
  Sender: FDA-Public Use
  Company Number: CA-TEVA-2018-CA-933317

PATIENT
  Age: 25 Year
  Sex: Male
  Weight: 78 kg

DRUGS (32)
  1. CANESTEN?HC 1% CREAM?POWDER MIXTURE [Concomitant]
  2. CETAPHIL ACNE PRINCIPLES [Concomitant]
  3. DOMPERIDONE [Concomitant]
     Active Substance: DOMPERIDONE
  4. SYNTHROID [Concomitant]
     Active Substance: LEVOTHYROXINE SODIUM
  5. TYLENOL EXTRA STRENGTH [Concomitant]
     Active Substance: ACETAMINOPHEN
  6. FLOVENT HFA [Concomitant]
     Active Substance: FLUTICASONE PROPIONATE
  7. CETAPHIL [Concomitant]
     Active Substance: AVOBENZONE\OCTOCRYLENE\TRICLOSAN
  8. EPIVAL [Concomitant]
     Active Substance: DIVALPROEX SODIUM
  9. OTRIVIN SALINE HYPERTONIC [Concomitant]
     Route: 045
  10. ESCITALOPRAM [Suspect]
     Active Substance: ESCITALOPRAM OXALATE
     Indication: DEPRESSION
     Route: 048
  11. ESCITALOPRAM [Suspect]
     Active Substance: ESCITALOPRAM OXALATE
     Indication: ANXIETY
  12. ACZONE [Concomitant]
     Active Substance: DAPSONE
  13. BENZACLIN TOPICAL [Concomitant]
  14. CIPRALEX [Concomitant]
     Active Substance: ESCITALOPRAM OXALATE
  15. FLOVENT DISKUS [Concomitant]
     Active Substance: FLUTICASONE PROPIONATE
  16. GENTEAL MILD [Concomitant]
     Active Substance: HYPROMELLOSE 2910 (4000 MPA.S)
  17. OMEGA 3?6?9 [Concomitant]
     Active Substance: FISH OIL
  18. SEROQUEL [Concomitant]
     Active Substance: QUETIAPINE FUMARATE
  19. VITAMIN D2 [Concomitant]
     Active Substance: ERGOCALCIFEROL
  20. ZINC GLUCONATE [Concomitant]
     Active Substance: ZINC GLUCONATE
  21. AZITHROMYCIN ANHYDROUS. [Concomitant]
     Active Substance: AZITHROMYCIN ANHYDROUS
  22. ZYLOPRIM [Concomitant]
     Active Substance: ALLOPURINOL
  23. CALCIUM [Concomitant]
     Active Substance: CALCIUM
  24. CETAPHIL OILY SKIN CLEANSER [Concomitant]
  25. DICLOFENAC [Concomitant]
     Active Substance: DICLOFENAC
  26. NASACORT AQ [Concomitant]
     Active Substance: TRIAMCINOLONE ACETONIDE
  27. TEARS PLUS [Concomitant]
  28. ACETAMINOPHEN. [Concomitant]
     Active Substance: ACETAMINOPHEN
  29. SEROQUEL [Concomitant]
     Active Substance: QUETIAPINE FUMARATE
  30. TECTA [Concomitant]
     Active Substance: PANTOPRAZOLE MAGNESIUM
  31. TOVIAZ [Concomitant]
     Active Substance: FESOTERODINE FUMARATE
  32. TYLENOL [Concomitant]
     Active Substance: ACETAMINOPHEN

REACTIONS (3)
  - Mental impairment [Recovered/Resolved]
  - Product substitution issue [Recovered/Resolved]
  - General physical health deterioration [Recovered/Resolved]
